FAERS Safety Report 5546005-9 (Version None)
Quarter: 2007Q4

REPORT INFORMATION
  Report Type: 
  Country: None (occurrence: None)
  Receive Date: 20071123
  Receipt Date: 20061116
  Transmission Date: 20080405
  Serious: Yes (Hospitalization)
  Sender: FDA-Public Use
  Company Number: 2006US003089

PATIENT
  Age: 69 Year
  Sex: Male
  Weight: 78.8 kg

DRUGS (10)
  1. LEUCOVORIN CALCIUM [Suspect]
     Indication: BILIARY NEOPLASM
     Dosage: 25 MG/M2, X5D, INTRAVENOUS
     Route: 042
     Dates: start: 20060410
  2. FLUOROURACIL [Suspect]
     Indication: BILIARY NEOPLASM
     Dosage: 375 MG/M2, X5D, IV BOLUS
     Route: 040
     Dates: start: 20060410
  3. OSCAL (CALCIUM CARBONATE) [Concomitant]
  4. PREDNISONE [Concomitant]
  5. PREVACID [Concomitant]
  6. COLACE (DOCUSATE SODIUM) [Concomitant]
  7. TAMSULOSIN HCL [Concomitant]
  8. REGLAN [Concomitant]
  9. MAALOX (MAGNESIUM HYDROXIDE, ALUMINIUM HYDROXIDE) [Concomitant]
  10. POTASSIUM CHLORIDE [Concomitant]

REACTIONS (1)
  - ABDOMINAL PAIN [None]
